FAERS Safety Report 9252803 (Version 1)
Quarter: 2013Q2

REPORT INFORMATION
  Report Type: Spontaneous
  Country: US (occurrence: US)
  Receive Date: 20130424
  Receipt Date: 20130424
  Transmission Date: 20140414
  Serious: No
  Sender: FDA-Public Use
  Company Number: US-BAUSCH-BL-2012-001457

PATIENT
  Age: 45 Year
  Sex: Male

DRUGS (2)
  1. LOTEMAX (LOTEPREDNOL ETABONATE OPHTHALMIC SUSPENSION 0.5%) [Suspect]
     Indication: MEDICATION ERROR
     Dosage: ONE DROP INTO LEFT EYE ONCE
     Route: 047
     Dates: start: 20120815
  2. LOTEMAX (LOTEPREDNOL ETABONATE OPHTHALMIC SUSPENSION 0.5%) [Suspect]
     Indication: DRUG ADMINISTRATION ERROR

REACTIONS (2)
  - Myopia [Recovered/Resolved]
  - Medication error [Recovered/Resolved]
